FAERS Safety Report 24684522 (Version 2)
Quarter: 2024Q4

REPORT INFORMATION
  Report Type: Spontaneous
  Country: US (occurrence: US)
  Receive Date: 20241202
  Receipt Date: 20241205
  Transmission Date: 20250115
  Serious: Yes (Death, Hospitalization)
  Sender: STRIDES
  Company Number: US-STRIDES ARCOLAB LIMITED-2024SP015200

PATIENT
  Age: 10 Month
  Sex: Male

DRUGS (1)
  1. OLANZAPINE [Suspect]
     Active Substance: OLANZAPINE
     Indication: Delirium
     Dosage: UNK
     Route: 065

REACTIONS (12)
  - Multiple organ dysfunction syndrome [Fatal]
  - Shock [Fatal]
  - Lactic acidosis [Fatal]
  - Acute kidney injury [Fatal]
  - Cerebral disorder [Fatal]
  - Disseminated intravascular coagulation [Fatal]
  - Myocardial infarction [Fatal]
  - Hypoxic-ischaemic encephalopathy [Fatal]
  - Cerebral infarction [Fatal]
  - Organ failure [Unknown]
  - Neuroleptic malignant syndrome [Fatal]
  - Off label use [Unknown]
